FAERS Safety Report 13355532 (Version 3)
Quarter: 2017Q2

REPORT INFORMATION
  Report Type: Spontaneous
  Country: JP (occurrence: JP)
  Receive Date: 20170321
  Receipt Date: 20170519
  Transmission Date: 20170830
  Serious: Yes (Hospitalization, Other)
  Sender: FDA-Public Use
  Company Number: JP-009507513-1703JPN001604J

PATIENT
  Age: 47 Year
  Sex: Male
  Weight: 69 kg

DRUGS (6)
  1. EPZICOM [Suspect]
     Active Substance: ABACAVIR SULFATE\LAMIVUDINE
     Indication: HIV INFECTION
     Dosage: 1 TABLET, QD
     Route: 048
     Dates: start: 20120202
  2. IPD [Concomitant]
     Active Substance: SUPLATAST TOSILATE
     Indication: PSORIASIS
     Dosage: 3 CAPSULES, TID
     Route: 048
     Dates: start: 20070316
  3. XYZAL [Concomitant]
     Active Substance: LEVOCETIRIZINE DIHYDROCHLORIDE
     Indication: PSORIASIS
     Dosage: 5 MG, QD
     Route: 048
     Dates: start: 20120425
  4. CLARITIN [Concomitant]
     Active Substance: LORATADINE
     Indication: PSORIASIS
     Dosage: 10 MG, QD
     Route: 048
     Dates: start: 20140711
  5. ISENTRESS [Suspect]
     Active Substance: RALTEGRAVIR POTASSIUM
     Indication: HIV INFECTION
     Dosage: 400 MG, BID
     Route: 048
     Dates: start: 20120202
  6. BIOTIN [Concomitant]
     Active Substance: BIOTIN
     Indication: PSORIASIS
     Dosage: 1 G, TID
     Route: 048
     Dates: start: 20060712

REACTIONS (2)
  - Immune reconstitution inflammatory syndrome [Recovered/Resolved]
  - Guillain-Barre syndrome [Recovered/Resolved]

NARRATIVE: CASE EVENT DATE: 20160723
